FAERS Safety Report 8612129 (Version 3)
Quarter: 2012Q4

REPORT INFORMATION
  Report Type: 
  Country: US (occurrence: US)
  Receive Date: 20120613
  Receipt Date: 20121018
  Transmission Date: 20130627
  Serious: Yes (Hospitalization, Disabling, Other)
  Sender: FDA-Public Use
  Company Number: PHEH2012US011661

PATIENT
  Age: 42 None
  Sex: Female
  Weight: 71 kg

DRUGS (5)
  1. GILENYA [Suspect]
     Indication: MULTIPLE SCLEROSIS
     Dosage: 0.5 mg, QD
     Route: 048
     Dates: start: 20111017, end: 20120601
  2. ZOLOFT [Concomitant]
     Indication: DEPRESSION
     Dosage: 100 mg, QD
     Route: 048
     Dates: start: 200602
  3. NEURONTIN [Concomitant]
     Indication: PAIN
     Dosage: 400 mg, TID
     Route: 048
     Dates: start: 200602
  4. TRILEPTAL [Concomitant]
     Indication: FACIAL SPASM
     Dosage: 450 mg, BID
     Route: 048
     Dates: start: 20120116
  5. NEXIUM [Concomitant]
     Indication: GASTROOESOPHAGEAL REFLUX DISEASE
     Dates: start: 200602

REACTIONS (2)
  - Thyroid cancer [Recovered/Resolved with Sequelae]
  - Ovarian mass [Unknown]
